FAERS Safety Report 7355046-0 (Version None)
Quarter: 2011Q1

REPORT INFORMATION
  Report Type: 
  Country: None (occurrence: None)
  Receive Date: 20110316
  Receipt Date: 20110303
  Transmission Date: 20110831
  Serious: Yes (Hospitalization)
  Sender: FDA-Public Use
  Company Number: US-BRACCO-005646

PATIENT
  Sex: Male
  Weight: 95.9 kg

DRUGS (23)
  1. NORVASC [Concomitant]
     Dosage: PRIOR TO PATIENT HOSPITALIZATION
     Dates: end: 20101129
  2. PREDNISONE [Concomitant]
     Dates: start: 20101203
  3. MULTIHANCE [Suspect]
     Indication: OSTEOMYELITIS
     Dates: start: 20101207, end: 20101207
  4. PENICILLIN [Concomitant]
     Dates: start: 20101201
  5. FERROUS SULFATE TAB [Concomitant]
  6. LACTULOSE [Concomitant]
  7. COMBIVENT [Concomitant]
  8. MULTIHANCE [Suspect]
     Indication: NUCLEAR MAGNETIC RESONANCE IMAGING
     Dates: start: 20101207, end: 20101207
  9. HEPARIN [Concomitant]
  10. K-DUR [Concomitant]
  11. NOVOLOG [Concomitant]
     Dosage: SLIDING SCALE 70-120, NO UNTIS, 120-150, 2 UNITS, }150, INFUSION PROTOCOL
  12. NEURONTIN [Concomitant]
  13. MOTRIN [Concomitant]
  14. MEROPENEM [Concomitant]
     Dates: start: 20101101
  15. PRILOSEC [Concomitant]
  16. IRON [Concomitant]
  17. PEPCID [Concomitant]
  18. NORVASC [Concomitant]
     Dosage: ADMINISTED DURING PATIENT HOSPITALISATION (DOSE NOT REPORTED)
     Dates: start: 20100101
  19. ALBUTEROL [Concomitant]
  20. XIFAXAN [Concomitant]
     Dates: start: 20101130
  21. VANCOMYCIN [Concomitant]
     Indication: OSTEOMYELITIS
     Dates: start: 20101207
  22. INDERAL [Concomitant]
  23. ALTACE [Concomitant]

REACTIONS (3)
  - ANAPHYLACTIC REACTION [None]
  - CARDIAC ARREST [None]
  - RESPIRATORY ARREST [None]
